FAERS Safety Report 13647272 (Version 3)
Quarter: 2017Q3

REPORT INFORMATION
  Report Type: Report from Study
  Country: UA (occurrence: UA)
  Receive Date: 20170613
  Receipt Date: 20170728
  Transmission Date: 20171127
  Serious: Yes (Other)
  Sender: FDA-Public Use
  Company Number: UA-PFIZER INC-2017253507

PATIENT

DRUGS (7)
  1. DOXORUBICIN HCL [Suspect]
     Active Substance: DOXORUBICIN HYDROCHLORIDE
     Indication: OSTEOSARCOMA
     Dosage: 35 MG/M2, CYCLIC (FOR 2 DAYS) (3 CYCLES)
  2. DOXORUBICIN HCL [Suspect]
     Active Substance: DOXORUBICIN HYDROCHLORIDE
     Dosage: 45 MG/M2, CYCLIC (FOR 2 DAYS) (3 CYCLES)
  3. CISPLATIN. [Suspect]
     Active Substance: CISPLATIN
     Indication: OSTEOSARCOMA
     Dosage: 60 MG/M2, CYCLIC (FOR 2 DAYS) (3 CYCLES)
  4. CALCIUM FOLINATE [Concomitant]
     Active Substance: LEUCOVORIN CALCIUM
     Indication: OSTEOSARCOMA
     Dosage: 15 MG/M2, UNK
  5. METHOTREXATE. [Concomitant]
     Active Substance: METHOTREXATE
     Indication: OSTEOSARCOMA
     Dosage: 12000 MG/M2, UNK (12 G/M2)
  6. CISPLATIN. [Suspect]
     Active Substance: CISPLATIN
     Dosage: 75 MG/M2, CYCLIC (FOR 2 DAYS) (3 CYCLES)
  7. CAFFEINE. [Suspect]
     Active Substance: CAFFEINE
     Dosage: 1 G, DAILY

REACTIONS (1)
  - Renal impairment [Unknown]
